FAERS Safety Report 5320332-2 (Version None)
Quarter: 2007Q1

REPORT INFORMATION
  Report Type: 
  Country: None (occurrence: None)
  Receive Date: 20070220
  Receipt Date: 20061215
  Transmission Date: 20070707
  Serious: No
  Sender: FDA-Public Use
  Company Number: WAES 0612USA02782

PATIENT
  Sex: Male

DRUGS (1)
  1. JANUVIA [Suspect]
     Indication: IMPAIRED FASTING GLUCOSE
     Dosage: PO
     Route: 048
     Dates: start: 20061115

REACTIONS (1)
  - RECTAL HAEMORRHAGE [None]
